FAERS Safety Report 5830610-6 (Version None)
Quarter: 2008Q3

REPORT INFORMATION
  Report Type: 
  Country: None (occurrence: None)
  Receive Date: 20080801
  Receipt Date: 20070815
  Transmission Date: 20090109
  Serious: Yes (Hospitalization)
  Sender: FDA-Public Use
  Company Number: US-BRISTOL-MYERS SQUIBB COMPANY-13878640

PATIENT
  Age: 69 Year
  Sex: Female
  Weight: 87 kg

DRUGS (9)
  1. COUMADIN [Suspect]
     Indication: HEART RATE IRREGULAR
     Route: 048
  2. COUMADIN [Suspect]
     Indication: MITRAL VALVE REPLACEMENT
     Route: 048
  3. LANOXIN [Concomitant]
     Route: 048
  4. COREG [Concomitant]
     Route: 048
  5. SYNTHROID [Concomitant]
     Route: 048
  6. LASIX [Concomitant]
     Route: 048
  7. DIOVAN [Concomitant]
     Route: 048
  8. POTASSIUM CHLORIDE [Concomitant]
     Route: 048
  9. NIFEREX [Concomitant]
     Route: 048

REACTIONS (2)
  - CEREBRAL HAEMORRHAGE [None]
  - INTERNATIONAL NORMALISED RATIO INCREASED [None]
